FAERS Safety Report 7586474-6 (Version None)
Quarter: 2011Q2

REPORT INFORMATION
  Report Type: 
  Country: None (occurrence: None)
  Receive Date: 20110603
  Receipt Date: 20110426
  Transmission Date: 20111010
  Serious: Yes (Other)
  Sender: FDA-Public Use
  Company Number: 2011SP019376

PATIENT
  Sex: Female

DRUGS (1)
  1. SAPHRIS [Suspect]
     Indication: MENTAL DISORDER
     Dosage: BID;SL
     Route: 060

REACTIONS (5)
  - CONVULSION [None]
  - EYE MOVEMENT DISORDER [None]
  - TACHYCARDIA [None]
  - URINARY INCONTINENCE [None]
  - SYNCOPE [None]
